FAERS Safety Report 11540428 (Version 1)
Quarter: 2015Q3

REPORT INFORMATION
  Report Type: Spontaneous
  Country: US (occurrence: US)
  Receive Date: 20150923
  Receipt Date: 20150923
  Transmission Date: 20151125
  Serious: No
  Sender: FDA-Public Use
  Company Number: US-BEH-2014046012

PATIENT
  Weight: 76.2 kg

DRUGS (52)
  1. EFFEXOR [Concomitant]
     Active Substance: VENLAFAXINE HYDROCHLORIDE
  2. EPIPEN [Concomitant]
     Active Substance: EPINEPHRINE
  3. PROCHLORPERAZINE. [Concomitant]
     Active Substance: PROCHLORPERAZINE
  4. VALIUM [Concomitant]
     Active Substance: DIAZEPAM
  5. DRONABINOL. [Concomitant]
     Active Substance: DRONABINOL
  6. DHEA ACETATE [Concomitant]
  7. XYLOCAINE [Concomitant]
     Active Substance: LIDOCAINE HYDROCHLORIDE
  8. ALL OTHER THERAPEUTIC PRODUCTS [Concomitant]
     Active Substance: UNSPECIFIED INGREDIENT
  9. TEGRETOL [Concomitant]
     Active Substance: CARBAMAZEPINE
  10. PROMETHAZINE [Concomitant]
     Active Substance: PROMETHAZINE\PROMETHAZINE HYDROCHLORIDE
  11. RELPAX [Concomitant]
     Active Substance: ELETRIPTAN HYDROBROMIDE
  12. MARINOL [Concomitant]
     Active Substance: DRONABINOL
  13. MIRALAX [Concomitant]
     Active Substance: POLYETHYLENE GLYCOL 3350
  14. NAMENDA [Concomitant]
     Active Substance: MEMANTINE HYDROCHLORIDE
  15. TOPAMAX [Concomitant]
     Active Substance: TOPIRAMATE
  16. CYANOCOBALAMIN. [Concomitant]
     Active Substance: CYANOCOBALAMIN
  17. CITALOPRAM [Concomitant]
     Active Substance: CITALOPRAM HYDROBROMIDE
  18. NEXIUM [Concomitant]
     Active Substance: ESOMEPRAZOLE MAGNESIUM
  19. MECLIZINE [Concomitant]
     Active Substance: MECLIZINE\MECLIZINE HYDROCHLORIDE
  20. COPAXONE [Concomitant]
     Active Substance: GLATIRAMER ACETATE
  21. SINGULAIR [Concomitant]
     Active Substance: MONTELUKAST SODIUM
  22. TIZANIDINE. [Concomitant]
     Active Substance: TIZANIDINE
  23. ACETAMINOPHEN. [Concomitant]
     Active Substance: ACETAMINOPHEN
  24. NORMAL SALINE [Concomitant]
     Active Substance: SODIUM CHLORIDE
  25. ZOFRAN [Concomitant]
     Active Substance: ONDANSETRON HYDROCHLORIDE
  26. NYSTATIN. [Concomitant]
     Active Substance: NYSTATIN
  27. MELATONIN [Concomitant]
     Active Substance: MELATONIN
  28. ZITHROMAX [Concomitant]
     Active Substance: AZITHROMYCIN DIHYDRATE
  29. BUPROFEN [Concomitant]
  30. NEURONTIN [Concomitant]
     Active Substance: GABAPENTIN
  31. TRAMADOL. [Concomitant]
     Active Substance: TRAMADOL
  32. MORPHINE [Concomitant]
     Active Substance: MORPHINE
  33. ZEGERID [Concomitant]
     Active Substance: OMEPRAZOLE\SODIUM BICARBONATE
  34. HEPARIN [Concomitant]
     Active Substance: HEPARIN SODIUM
  35. ALBUTEROL. [Concomitant]
     Active Substance: ALBUTEROL
  36. FROVA [Concomitant]
     Active Substance: FROVATRIPTAN SUCCINATE
  37. AMITRIPTYLINE [Concomitant]
     Active Substance: AMITRIPTYLINE
  38. PRIVIGEN [Suspect]
     Active Substance: HUMAN IMMUNOGLOBULIN G
  39. BUTORPHANOL [Concomitant]
     Active Substance: BUTORPHANOL
  40. MAALOX ANTACID [Concomitant]
     Active Substance: ALUMINUM HYDROXIDE\DIMETHICONE\MAGNESIUM HYDROXIDE
  41. SODIUM CHLORIDE. [Concomitant]
     Active Substance: SODIUM CHLORIDE
  42. PROTON PUMP INHIBITORS [Concomitant]
     Active Substance: UNSPECIFIED INGREDIENT
  43. LYRICA [Concomitant]
     Active Substance: PREGABALIN
  44. CEFTIN [Concomitant]
     Active Substance: CEFUROXIME AXETIL
  45. MUCINEX [Concomitant]
     Active Substance: GUAIFENESIN
  46. CRANBERRY. [Concomitant]
     Active Substance: CRANBERRY
  47. CHLORPROMAZINE. [Concomitant]
     Active Substance: CHLORPROMAZINE
  48. PSYCHOSTIMULANTS AND NOOTROPICS [Concomitant]
  49. RANITIDINE [Concomitant]
     Active Substance: RANITIDINE\RANITIDINE HYDROCHLORIDE
  50. DIPHENHYDRAMINE. [Concomitant]
     Active Substance: DIPHENHYDRAMINE
  51. SONATA [Concomitant]
     Active Substance: ZALEPLON
  52. ATIVAN [Concomitant]
     Active Substance: LORAZEPAM

REACTIONS (2)
  - Nausea [Unknown]
  - Diarrhoea [Unknown]

NARRATIVE: CASE EVENT DATE: 20140925
